FAERS Safety Report 16893201 (Version 1)
Quarter: 2019Q4

REPORT INFORMATION
  Report Type: Spontaneous
  Country: GB (occurrence: GB)
  Receive Date: 20191008
  Receipt Date: 20191008
  Transmission Date: 20200122
  Serious: Yes (Hospitalization, Other)
  Sender: FDA-Public Use
  Company Number: GB-TEVA-2019-GB-1117525

PATIENT
  Age: 91 Year
  Sex: Female
  Weight: 52.29 kg

DRUGS (8)
  1. FOSFOMYCIN [Concomitant]
     Active Substance: FOSFOMYCIN
     Dosage: SINGLE DOSE
     Dates: start: 20190709
  2. NITROFURANTOIN. [Suspect]
     Active Substance: NITROFURANTOIN
     Indication: URINARY TRACT INFECTION
     Dosage: FOR 3 DAYS (200 MILLIGRAM PER DAY)
     Route: 048
     Dates: start: 20190819, end: 20190820
  3. OMEPRAZOLE. [Concomitant]
     Active Substance: OMEPRAZOLE
     Dosage: ONCE A DAY (20 MILLIGRAM)
     Dates: start: 20190624
  4. COCODAMOL [Concomitant]
     Active Substance: ACETAMINOPHEN\CODEINE PHOSPHATE
     Dosage: 8MG/500MG (8 DOSAGE FORMS PER DAY)
     Dates: start: 20190806
  5. ALZEST [Concomitant]
     Active Substance: RIVASTIGMINE
     Dosage: 4.6MG/24HOURS
     Dates: start: 20190806
  6. MEMANTINE. [Concomitant]
     Active Substance: MEMANTINE
     Dosage: 20 MILLIGRAM
     Dates: start: 201907
  7. ADCAL-D3 [Concomitant]
     Active Substance: CALCIUM CARBONATE\CHOLECALCIFEROL
     Dosage: 1500MG/400UNIT (2 DOSAGE FORMS PER DAY)
     Dates: start: 20190624, end: 20190912
  8. CALCIPOTRIOL [Concomitant]
     Active Substance: CALCIPOTRIENE
     Dosage: 50MICROGRAMS/G (2 DOSAGE FORMS PER DAY)
     Dates: start: 20190704

REACTIONS (1)
  - Myoclonic epilepsy [Recovered/Resolved]

NARRATIVE: CASE EVENT DATE: 20190820
